FAERS Safety Report 9269974 (Version 1)
Quarter: 2013Q2

REPORT INFORMATION
  Report Type: Report from Study
  Country: AR (occurrence: AR)
  Receive Date: 20130503
  Receipt Date: 20130503
  Transmission Date: 20140414
  Serious: Yes (Death, Hospitalization)
  Sender: FDA-Public Use
  Company Number: AR-SANOFI-AVENTIS-2013SA043646

PATIENT
  Sex: Male

DRUGS (2)
  1. LANTUS SOLOSTAR [Suspect]
     Indication: DIABETES MELLITUS
     Route: 058
  2. SOLOSTAR [Suspect]
     Indication: DEVICE THERAPY

REACTIONS (4)
  - Death [Fatal]
  - Fall [Unknown]
  - Headache [Unknown]
  - Blood glucose abnormal [Unknown]
